FAERS Safety Report 21191646 (Version 1)
Quarter: 2022Q3

REPORT INFORMATION
  Report Type: Report from Study
  Country: CN (occurrence: CN)
  Receive Date: 20220809
  Receipt Date: 20220809
  Transmission Date: 20221027
  Serious: Yes (Death, Other)
  Sender: FDA-Public Use
  Company Number: CN-BAXTER-2022BAX016840

PATIENT
  Age: 81 Year
  Sex: Male
  Weight: 60 kg

DRUGS (24)
  1. AMINO ACIDS\DEXTROSE\ELECTROLYTES NOS\SOYBEAN OIL [Suspect]
     Active Substance: AMINO ACIDS\DEXTROSE\ELECTROLYTES NOS\SOYBEAN OIL
     Indication: Product used for unknown indication
     Dosage: 1500 ML AT INFUSION RATE 3ML/KG/H
     Route: 065
     Dates: start: 20211011, end: 20211011
  2. AMINO ACIDS\DEXTROSE\ELECTROLYTES NOS\SOYBEAN OIL [Suspect]
     Active Substance: AMINO ACIDS\DEXTROSE\ELECTROLYTES NOS\SOYBEAN OIL
     Dosage: 1500 ML AT INFUSION RATE 3ML/KG/H
     Route: 065
     Dates: start: 20211012, end: 20211013
  3. AMINO ACIDS\DEXTROSE\ELECTROLYTES NOS\SOYBEAN OIL [Suspect]
     Active Substance: AMINO ACIDS\DEXTROSE\ELECTROLYTES NOS\SOYBEAN OIL
     Dosage: 1500 ML AT INFUSION RATE 3ML/KG/H
     Route: 065
     Dates: start: 20211013, end: 20211014
  4. AMINO ACIDS\DEXTROSE\ELECTROLYTES NOS\SOYBEAN OIL [Suspect]
     Active Substance: AMINO ACIDS\DEXTROSE\ELECTROLYTES NOS\SOYBEAN OIL
     Dosage: 1500 ML AT INFUSION RATE 3ML/KG/H
     Route: 065
     Dates: start: 20211014, end: 20211015
  5. AMINO ACIDS\DEXTROSE\ELECTROLYTES NOS\SOYBEAN OIL [Suspect]
     Active Substance: AMINO ACIDS\DEXTROSE\ELECTROLYTES NOS\SOYBEAN OIL
     Dosage: 1500 ML AT INFUSION RATE 3ML/KG/H
     Route: 065
     Dates: start: 20211016, end: 20211017
  6. AMINO ACIDS\DEXTROSE\ELECTROLYTES NOS\SOYBEAN OIL [Suspect]
     Active Substance: AMINO ACIDS\DEXTROSE\ELECTROLYTES NOS\SOYBEAN OIL
     Dosage: 1500 ML AT INFUSION RATE 3ML/KG/H
     Route: 065
     Dates: start: 20211017, end: 20211018
  7. AMINO ACIDS\DEXTROSE\ELECTROLYTES NOS\SOYBEAN OIL [Suspect]
     Active Substance: AMINO ACIDS\DEXTROSE\ELECTROLYTES NOS\SOYBEAN OIL
     Dosage: 1500 ML AT INFUSION RATE 3ML/KG/H
     Route: 065
     Dates: start: 20211018, end: 20211019
  8. AMINO ACIDS\DEXTROSE\ELECTROLYTES NOS\SOYBEAN OIL [Suspect]
     Active Substance: AMINO ACIDS\DEXTROSE\ELECTROLYTES NOS\SOYBEAN OIL
     Dosage: 1500 ML AT INFUSION RATE 3ML/KG/H
     Route: 065
     Dates: start: 20211019, end: 20211020
  9. AMINO ACIDS\DEXTROSE\ELECTROLYTES NOS\SOYBEAN OIL [Suspect]
     Active Substance: AMINO ACIDS\DEXTROSE\ELECTROLYTES NOS\SOYBEAN OIL
     Dosage: 1500 ML AT INFUSION RATE 3ML/KG/H
     Route: 065
     Dates: start: 20211020, end: 20211021
  10. AMINO ACIDS\DEXTROSE\ELECTROLYTES NOS\SOYBEAN OIL [Suspect]
     Active Substance: AMINO ACIDS\DEXTROSE\ELECTROLYTES NOS\SOYBEAN OIL
     Dosage: 1500 ML AT INFUSION RATE 3ML/KG/H
     Route: 065
     Dates: start: 20211021, end: 20211022
  11. AMINO ACIDS\DEXTROSE\ELECTROLYTES NOS\SOYBEAN OIL [Suspect]
     Active Substance: AMINO ACIDS\DEXTROSE\ELECTROLYTES NOS\SOYBEAN OIL
     Dosage: 1500 ML AT INFUSION RATE 3ML/KG/H
     Route: 065
     Dates: start: 20211022, end: 20211023
  12. AMINO ACIDS\DEXTROSE\ELECTROLYTES NOS\SOYBEAN OIL [Suspect]
     Active Substance: AMINO ACIDS\DEXTROSE\ELECTROLYTES NOS\SOYBEAN OIL
     Dosage: 1500 ML AT INFUSION RATE 3ML/KG/H
     Route: 065
     Dates: start: 20211023, end: 20211024
  13. VITAMINS NOS [Concomitant]
     Active Substance: VITAMINS
     Indication: Drug therapy
     Dosage: 1IU
     Route: 065
     Dates: start: 20211011, end: 20211011
  14. VITAMINS NOS [Concomitant]
     Active Substance: VITAMINS
     Dosage: 1IU
     Route: 065
     Dates: start: 20211012, end: 20211013
  15. VITAMINS NOS [Concomitant]
     Active Substance: VITAMINS
     Dosage: 1IU
     Route: 065
     Dates: start: 20211013, end: 20211014
  16. VITAMINS NOS [Concomitant]
     Active Substance: VITAMINS
     Dosage: 1IU
     Route: 065
     Dates: start: 20211014, end: 20211015
  17. UNSPECIFIED INGREDIENT [Concomitant]
     Active Substance: UNSPECIFIED INGREDIENT
     Indication: Drug therapy
     Dosage: 1G
     Route: 065
     Dates: start: 20211016, end: 20211017
  18. UNSPECIFIED INGREDIENT [Concomitant]
     Active Substance: UNSPECIFIED INGREDIENT
     Dosage: 1G
     Route: 065
     Dates: start: 20211017, end: 20211018
  19. UNSPECIFIED INGREDIENT [Concomitant]
     Active Substance: UNSPECIFIED INGREDIENT
     Dosage: 1G
     Route: 065
     Dates: start: 20211018, end: 20211019
  20. UNSPECIFIED INGREDIENT [Concomitant]
     Active Substance: UNSPECIFIED INGREDIENT
     Dosage: 1G
     Route: 065
     Dates: start: 20211019, end: 20211020
  21. UNSPECIFIED INGREDIENT [Concomitant]
     Active Substance: UNSPECIFIED INGREDIENT
     Dosage: 1G
     Route: 065
     Dates: start: 20211020, end: 20211021
  22. UNSPECIFIED INGREDIENT [Concomitant]
     Active Substance: UNSPECIFIED INGREDIENT
     Dosage: 1G
     Route: 065
     Dates: start: 20211021, end: 20211022
  23. UNSPECIFIED INGREDIENT [Concomitant]
     Active Substance: UNSPECIFIED INGREDIENT
     Dosage: 1G
     Route: 065
     Dates: start: 20211022, end: 20211023
  24. UNSPECIFIED INGREDIENT [Concomitant]
     Active Substance: UNSPECIFIED INGREDIENT
     Dosage: 1G
     Route: 065
     Dates: start: 20211023, end: 20211024

REACTIONS (1)
  - Intestinal obstruction [Fatal]

NARRATIVE: CASE EVENT DATE: 20211011
